FAERS Safety Report 7032728-1 (Version None)
Quarter: 2010Q4

REPORT INFORMATION
  Report Type: 
  Country: None (occurrence: None)
  Receive Date: 20101007
  Receipt Date: 20101004
  Transmission Date: 20110411
  Serious: Yes (Other)
  Sender: FDA-Public Use
  Company Number: FR-ROCHE-730684

PATIENT
  Sex: Female

DRUGS (9)
  1. ROCEPHIN [Suspect]
     Indication: PYELONEPHRITIS
     Route: 042
     Dates: start: 20100923, end: 20100928
  2. TERALITHE [Suspect]
     Route: 048
     Dates: end: 20100928
  3. ZYPREXA [Concomitant]
     Dosage: DURATION REPORTED AS YEARS
     Route: 048
  4. DEPAKOTE [Concomitant]
     Dosage: TREATMENT DURATION REPORTED AS YEARS
     Route: 048
  5. NOCTRAN [Concomitant]
     Dates: end: 20100923
  6. PANTOPRAZOLE [Concomitant]
  7. DOMPERIDONE [Concomitant]
  8. LEVOTHYROXINE SODIUM [Concomitant]
  9. ATARAX [Concomitant]
     Dates: end: 20100923

REACTIONS (1)
  - DIABETES INSIPIDUS [None]
